FAERS Safety Report 14946914 (Version 1)
Quarter: 2018Q2

REPORT INFORMATION
  Report Type: Spontaneous
  Country: FR (occurrence: FR)
  Receive Date: 20180529
  Receipt Date: 20180529
  Transmission Date: 20180711
  Serious: Yes (Other)
  Sender: FDA-Public Use
  Company Number: FR-MERCK KGAA-2048577

PATIENT
  Age: 68 Year
  Sex: Female

DRUGS (4)
  1. NOVOTHYROX [Suspect]
     Active Substance: LEVOTHYROXINE SODIUM
     Indication: HYPOTHYROIDISM
     Dates: start: 201701
  2. NOVOTHYROX [Suspect]
     Active Substance: LEVOTHYROXINE SODIUM
     Indication: AUTOIMMUNE THYROIDITIS
     Dates: start: 201701
  3. LEVOTHYROXINE SODIUM. [Suspect]
     Active Substance: LEVOTHYROXINE SODIUM
     Dates: start: 201701
  4. LEVOTHYROXINE SODIUM. [Suspect]
     Active Substance: LEVOTHYROXINE SODIUM
     Dates: end: 2017

REACTIONS (29)
  - Disturbance in attention [Recovering/Resolving]
  - Stress [Recovering/Resolving]
  - Impaired quality of life [Recovering/Resolving]
  - Chills [Recovering/Resolving]
  - Accommodation disorder [Recovering/Resolving]
  - Fear of disease [Recovering/Resolving]
  - Hyperhidrosis [Recovering/Resolving]
  - Arthralgia [Recovering/Resolving]
  - Balance disorder [Recovering/Resolving]
  - Impaired driving ability [Recovering/Resolving]
  - Fatigue [Recovering/Resolving]
  - Irritability [Recovering/Resolving]
  - Gait disturbance [Recovering/Resolving]
  - Decreased activity [Recovering/Resolving]
  - Dizziness [Recovering/Resolving]
  - Blood cholesterol increased [None]
  - Feeling cold [Recovering/Resolving]
  - Anxiety [Recovering/Resolving]
  - Crying [Recovering/Resolving]
  - Mental fatigue [Recovering/Resolving]
  - Amnesia [Recovering/Resolving]
  - Blood thyroid stimulating hormone increased [Recovered/Resolved]
  - Blood thyroid stimulating hormone decreased [Not Recovered/Not Resolved]
  - Feeling abnormal [Recovering/Resolving]
  - Headache [Recovering/Resolving]
  - Major depression [Recovering/Resolving]
  - Social avoidant behaviour [Recovering/Resolving]
  - Personality disorder [Recovering/Resolving]
  - Reading disorder [Recovering/Resolving]

NARRATIVE: CASE EVENT DATE: 20170119
